FAERS Safety Report 6077949-X (Version None)
Quarter: 2009Q1

REPORT INFORMATION
  Report Type: 
  Country: None (occurrence: None)
  Receive Date: 20090211
  Receipt Date: 20090126
  Transmission Date: 20090719
  Serious: Yes (Other)
  Sender: FDA-Public Use
  Company Number: 108294

PATIENT
  Age: 46 Year

DRUGS (1)
  1. DAIVOBET [Suspect]
     Dosage: TOPICAL
     Route: 061

REACTIONS (1)
  - PHARYNGEAL OEDEMA [None]
